FAERS Safety Report 15807259 (Version 1)
Quarter: 2019Q1

REPORT INFORMATION
  Report Type: Spontaneous
  Country: NL (occurrence: NL)
  Receive Date: 20190110
  Receipt Date: 20190110
  Transmission Date: 20190417
  Serious: Yes (Other)
  Sender: FDA-Public Use
  Company Number: NL-MYLANLABS-2019M1001534

PATIENT
  Age: 35 Year
  Sex: Female
  Weight: 62 kg

DRUGS (1)
  1. ALPRAZOLAM MYLAN 0,5 MG [Suspect]
     Active Substance: ALPRAZOLAM
     Indication: CONVERSION DISORDER
     Dosage: 250 MICROGRAM, Q8H, (3 X   0,5 PER DAG)
     Route: 050
     Dates: start: 20170101

REACTIONS (4)
  - Drug dependence [Not Recovered/Not Resolved]
  - Rebound effect [Recovering/Resolving]
  - Somnolence [Not Recovered/Not Resolved]
  - Mental disorder [Not Recovered/Not Resolved]

NARRATIVE: CASE EVENT DATE: 20170101
